FAERS Safety Report 9840027 (Version 1)
Quarter: 2013Q4

REPORT INFORMATION
  Report Type: Spontaneous
  Country: US (occurrence: None)
  Receive Date: 20131206
  Receipt Date: 20131206
  Transmission Date: 20140711
  Serious: Yes (Other)
  Sender: FDA-Public Use
  Company Number: 381508

PATIENT
  Age: 83 Year
  Sex: Male
  Weight: 90.7 kg

DRUGS (4)
  1. NOVOLOG MIX 70/30 FLEXPEN [Suspect]
     Indication: TYPE 2 DIABETES MELLITUS
     Route: 058
     Dates: start: 2011
  2. LANTUS (INSULIN GLARGINE) [Suspect]
     Indication: TYPE 2 DIABETES MELLITUS
     Route: 058
     Dates: start: 2011
  3. COREG [Concomitant]
  4. LIPITOR [Concomitant]

REACTIONS (2)
  - Hypoglycaemic unconsciousness [None]
  - Hypoglycaemia [None]
